FAERS Safety Report 6111540-1 (Version None)
Quarter: 2009Q1

REPORT INFORMATION
  Report Type: 
  Country: None (occurrence: None)
  Receive Date: 20090310
  Receipt Date: 20090310
  Transmission Date: 20090719
  Serious: Yes (Death, Life-Threatening, Hospitalization, Other)
  Sender: FDA-Public Use
  Company Number: None

PATIENT
  Age: 88 Year
  Sex: Female
  Weight: 86.1834 kg

DRUGS (3)
  1. SEROQUEL [Suspect]
     Indication: DELIRIUM
     Dosage: 50 MG HS PO
     Route: 048
  2. SEROQUEL [Suspect]
     Indication: DEMENTIA
     Dosage: 50 MG HS PO
     Route: 048
  3. ZYPREXA [Suspect]
     Indication: PSYCHOTIC DISORDER
     Dosage: 5-50 MG ORAL AND IM 2-3 DAILY AND PRN IM
     Route: 048

REACTIONS (20)
  - AGITATION [None]
  - BALANCE DISORDER [None]
  - CEREBROVASCULAR ACCIDENT [None]
  - COGWHEEL RIGIDITY [None]
  - CONFUSIONAL STATE [None]
  - DEHYDRATION [None]
  - DIZZINESS [None]
  - DYSPHAGIA [None]
  - DYSSTASIA [None]
  - FALL [None]
  - IMPAIRED SELF-CARE [None]
  - INCONTINENCE [None]
  - MALNUTRITION [None]
  - MOVEMENT DISORDER [None]
  - MUSCULOSKELETAL STIFFNESS [None]
  - RENAL FAILURE [None]
  - SCREAMING [None]
  - TREMOR [None]
  - URINARY INCONTINENCE [None]
  - URINARY TRACT INFECTION [None]
